FAERS Safety Report 21511664 (Version 1)
Quarter: 2022Q4

REPORT INFORMATION
  Report Type: Report from Study
  Country: CA (occurrence: CA)
  Receive Date: 20221027
  Receipt Date: 20221027
  Transmission Date: 20230113
  Serious: Yes (Other)
  Sender: FDA-Public Use
  Company Number: CA-ABBVIE-22K-028-4535887-00

PATIENT
  Sex: Female

DRUGS (1)
  1. RINVOQ [Suspect]
     Active Substance: UPADACITINIB
     Indication: Rheumatoid arthritis
     Dosage: FORM STRENGTH: 15 MILLIGRAM
     Route: 048
     Dates: start: 20210612, end: 20220905

REACTIONS (8)
  - Scoliosis [Unknown]
  - COVID-19 [Unknown]
  - Illness [Not Recovered/Not Resolved]
  - Limb injury [Unknown]
  - Pulmonary pain [Unknown]
  - Pneumonia [Unknown]
  - Pleurisy [Unknown]
  - Joint range of motion decreased [Unknown]

NARRATIVE: CASE EVENT DATE: 20220101
